FAERS Safety Report 6340714-X (Version None)
Quarter: 2009Q3

REPORT INFORMATION
  Report Type: 
  Country: None (occurrence: None)
  Receive Date: 20090904
  Receipt Date: 20090827
  Transmission Date: 20100115
  Serious: Yes (Other)
  Sender: FDA-Public Use
  Company Number: US-ROCHE-653220

PATIENT
  Age: 57 Year
  Sex: Female

DRUGS (5)
  1. BONIVA [Suspect]
     Indication: OSTEOPENIA
     Route: 048
     Dates: start: 20080101
  2. CALCIUM [Concomitant]
  3. INDOMETHACIN [Concomitant]
  4. WELCHOL [Concomitant]
  5. SYNTHROID [Concomitant]

REACTIONS (2)
  - FOOT FRACTURE [None]
  - TABLET ISSUE [None]
